APPROVED DRUG PRODUCT: ATROPINE AND DEMEROL
Active Ingredient: ATROPINE SULFATE; MEPERIDINE HYDROCHLORIDE
Strength: 0.4MG/ML;50MG/ML
Dosage Form/Route: INJECTABLE;INJECTION
Application: A087853 | Product #001
Applicant: ABBVIE INC
Approved: Nov 26, 1982 | RLD: No | RS: No | Type: DISCN